FAERS Safety Report 7005047-7 (Version None)
Quarter: 2010Q3

REPORT INFORMATION
  Report Type: 
  Country: None (occurrence: None)
  Receive Date: 20100921
  Receipt Date: 20100907
  Transmission Date: 20110219
  Serious: Yes (Hospitalization, Other)
  Sender: FDA-Public Use
  Company Number: PHHY2010DE62169

PATIENT
  Age: 36 Year
  Sex: Male

DRUGS (1)
  1. LEPONEX [Suspect]
     Route: 048

REACTIONS (3)
  - ISCHAEMIA [None]
  - PNEUMONIA [None]
  - PULMONARY EMBOLISM [None]
